FAERS Safety Report 6070031-7 (Version None)
Quarter: 2009Q1

REPORT INFORMATION
  Report Type: 
  Country: None (occurrence: None)
  Receive Date: 20090209
  Receipt Date: 20090128
  Transmission Date: 20090719
  Serious: Yes (Other)
  Sender: FDA-Public Use
  Company Number: PHHY2009JP02322

PATIENT
  Age: 34 Year
  Sex: Male

DRUGS (6)
  1. GLEEVEC [Suspect]
     Indication: ACUTE LYMPHOCYTIC LEUKAEMIA (IN REMISSION)
     Dosage: 400 MG/DAY
  2. GLEEVEC [Suspect]
     Dosage: 100 MG/DAY
  3. CYCLOPHOSPHAMIDE [Concomitant]
     Dosage: UNK
  4. RADIO-THERAPY [Concomitant]
     Dosage: 12 GY
  5. TACROLIMUS [Concomitant]
  6. METHOTREXATE [Concomitant]

REACTIONS (7)
  - ACUTE GRAFT VERSUS HOST DISEASE [None]
  - BONE MARROW TRANSPLANT [None]
  - CONDITION AGGRAVATED [None]
  - GRAFT VERSUS HOST DISEASE [None]
  - LEUKAEMIA RECURRENT [None]
  - PLATELET COUNT DECREASED [None]
  - WHITE BLOOD CELL COUNT DECREASED [None]
